FAERS Safety Report 10080985 (Version 2)
Quarter: 2014Q2

REPORT INFORMATION
  Report Type: Spontaneous
  Country: US (occurrence: US)
  Receive Date: 20140416
  Receipt Date: 20140611
  Transmission Date: 20141212
  Serious: Yes (Hospitalization)
  Sender: FDA-Public Use
  Company Number: US-BAYER-2014-054659

PATIENT
  Age: 33 Year
  Sex: Female

DRUGS (5)
  1. YASMIN [Suspect]
  2. LEXAPRO [Concomitant]
     Indication: ANXIETY
     Dosage: 20 MG, UNK
     Dates: start: 20080519
  3. LEXAPRO [Concomitant]
     Indication: ANXIETY
     Dosage: UNK
     Dates: start: 20080615
  4. METFORMIN HYDROCHLORIDE [Concomitant]
     Indication: POLYCYSTIC OVARIES
     Dosage: 500 MG, UNK
     Dates: start: 20080610
  5. VICODIN [Concomitant]
     Dosage: AS NEEDED

REACTIONS (1)
  - Deep vein thrombosis [Recovered/Resolved]
